FAERS Safety Report 7650071-4 (Version None)
Quarter: 2011Q3

REPORT INFORMATION
  Report Type: 
  Country: None (occurrence: None)
  Receive Date: 20110719
  Receipt Date: 20100907
  Transmission Date: 20111222
  Serious: Yes (Other)
  Sender: FDA-Public Use
  Company Number: 163-50794-10091199

PATIENT

DRUGS (12)
  1. VIDAZA [Suspect]
     Indication: ACUTE MYELOID LEUKAEMIA
     Dosage: PO
     Route: 048
  2. VIDAZA [Suspect]
     Indication: CHRONIC MYELOMONOCYTIC LEUKAEMIA
     Dosage: PO
     Route: 048
  3. VIDAZA [Suspect]
     Indication: MYELODYSPLASTIC SYNDROME
     Dosage: PO
     Route: 048
  4. SAPACITABINE (CHEMOTHERAPEUTICS) (UNKNOWN) [Suspect]
     Indication: CHRONIC MYELOMONOCYTIC LEUKAEMIA
  5. SAPACITABINE (CHEMOTHERAPEUTICS) (UNKNOWN) [Suspect]
     Indication: ACUTE MYELOID LEUKAEMIA
  6. SAPACITABINE (CHEMOTHERAPEUTICS) (UNKNOWN) [Suspect]
     Indication: MYELODYSPLASTIC SYNDROME
  7. CYTARABINE [Suspect]
     Indication: ACUTE MYELOID LEUKAEMIA
  8. CYTARABINE [Suspect]
     Indication: CHRONIC MYELOMONOCYTIC LEUKAEMIA
  9. CYTARABINE [Suspect]
     Indication: MYELODYSPLASTIC SYNDROME
  10. REVLIMID [Suspect]
     Indication: CHRONIC MYELOMONOCYTIC LEUKAEMIA
     Dosage: PO
     Route: 048
  11. REVLIMID [Suspect]
     Indication: ACUTE MYELOID LEUKAEMIA
     Dosage: PO
     Route: 048
  12. REVLIMID [Suspect]
     Indication: MYELODYSPLASTIC SYNDROME
     Dosage: PO
     Route: 048

REACTIONS (2)
  - ACUTE MYELOID LEUKAEMIA [None]
  - PANCYTOPENIA [None]
